FAERS Safety Report 6179627-5 (Version None)
Quarter: 2009Q2

REPORT INFORMATION
  Report Type: 
  Country: None (occurrence: None)
  Receive Date: 20090505
  Receipt Date: 20090424
  Transmission Date: 20091009
  Serious: Yes (Hospitalization, Disabling)
  Sender: FDA-Public Use
  Company Number: US-MERCK-0902USA01602

PATIENT
  Age: 60 Year
  Sex: Female
  Weight: 77 kg

DRUGS (7)
  1. FOSAMAX [Suspect]
     Indication: OSTEOPOROSIS
     Route: 048
     Dates: start: 19960101, end: 20070201
  2. FOSAMAX [Suspect]
     Route: 048
     Dates: start: 19970819
  3. FOSAMAX [Suspect]
     Indication: MULTIPLE MYELOMA
     Route: 048
     Dates: start: 19960101, end: 20070201
  4. FOSAMAX [Suspect]
     Route: 048
     Dates: start: 19970819
  5. BENTYL [Concomitant]
     Indication: IRRITABLE BOWEL SYNDROME
     Route: 065
     Dates: start: 19980101
  6. REGLAN [Concomitant]
     Indication: IRRITABLE BOWEL SYNDROME
     Route: 065
     Dates: start: 19980101
  7. PROTONIX [Concomitant]
     Indication: IRRITABLE BOWEL SYNDROME
     Route: 065
     Dates: start: 19980101

REACTIONS (36)
  - ABSCESS [None]
  - ANXIETY [None]
  - ARTHROPATHY [None]
  - ATRIAL FIBRILLATION [None]
  - ATRIOVENTRICULAR BLOCK COMPLETE [None]
  - BACK PAIN [None]
  - BENIGN OVARIAN TUMOUR [None]
  - BLOOD POTASSIUM INCREASED [None]
  - CARDIAC DISORDER [None]
  - CONTUSION [None]
  - COUGH [None]
  - CYSTOCELE [None]
  - DEPRESSION [None]
  - FALL [None]
  - FATIGUE [None]
  - FIBROMYALGIA [None]
  - GENERALISED OEDEMA [None]
  - GINGIVAL BLEEDING [None]
  - HAEMORRHOIDAL HAEMORRHAGE [None]
  - HEADACHE [None]
  - HYPERKALAEMIA [None]
  - INSOMNIA [None]
  - IRRITABLE BOWEL SYNDROME [None]
  - JAW DISORDER [None]
  - MENISCUS LESION [None]
  - OROPHARYNGEAL PAIN [None]
  - OSTEOARTHRITIS [None]
  - OSTEONECROSIS [None]
  - PARAESTHESIA [None]
  - RECTOCELE [None]
  - RENAL FAILURE ACUTE [None]
  - SLEEP APNOEA SYNDROME [None]
  - SLEEP DISORDER [None]
  - STRESS URINARY INCONTINENCE [None]
  - TREMOR [None]
  - URINARY TRACT INFECTION [None]
